FAERS Safety Report 12380801 (Version 1)
Quarter: 2016Q2

REPORT INFORMATION
  Report Type: Spontaneous
  Country: US (occurrence: None)
  Receive Date: 20160517
  Receipt Date: 20160517
  Transmission Date: 20160815
  Serious: No
  Sender: FDA-Public Use
  Company Number: None

PATIENT
  Age: 78 Year
  Sex: Female

DRUGS (1)
  1. ESBRIET [Suspect]
     Active Substance: PIRFENIDONE
     Indication: IDIOPATHIC PULMONARY FIBROSIS
     Route: 048
     Dates: start: 201604

REACTIONS (5)
  - Eating disorder [None]
  - Insomnia [None]
  - Musculoskeletal pain [None]
  - Groin pain [None]
  - Middle insomnia [None]

NARRATIVE: CASE EVENT DATE: 20160515
